FAERS Safety Report 25892599 (Version 2)
Quarter: 2025Q4

REPORT INFORMATION
  Report Type: Report from Study
  Country: EG (occurrence: EG)
  Receive Date: 20251007
  Receipt Date: 20251017
  Transmission Date: 20260117
  Serious: No
  Sender: SANDOZ
  Company Number: EG-SANDOZ-SDZ2025EG071487

PATIENT
  Sex: Female

DRUGS (1)
  1. OMNITROPE [Suspect]
     Active Substance: SOMATROPIN
     Indication: Growth hormone deficiency
     Dosage: UNK (STRENGTH 10 MG)
     Route: 058
     Dates: start: 20221114

REACTIONS (2)
  - Expired device used [Unknown]
  - Wrong technique in product usage process [Unknown]
